FAERS Safety Report 10178515 (Version 1)
Quarter: 2014Q2

REPORT INFORMATION
  Report Type: Spontaneous
  Country: GB (occurrence: None)
  Receive Date: 20140515
  Receipt Date: 20140515
  Transmission Date: 20141212
  Serious: Yes (Other)
  Sender: FDA-Public Use
  Company Number: GB-2014-0534

PATIENT
  Sex: 0

DRUGS (2)
  1. VINORELBINE TARTRATE [Suspect]
     Indication: BREAST CANCER METASTATIC
     Dosage: 40 MG, 2 CYCLES
     Route: 042
  2. CAPECITABINE [Suspect]
     Indication: BREAST CANCER METASTATIC
     Dosage: 2000/1500 MG, BID (2/DAY), DAY 1 TO DAY 14 CYCLE 1

REACTIONS (6)
  - Gastrointestinal toxicity [None]
  - Haematotoxicity [None]
  - Disease progression [None]
  - Metastases to liver [None]
  - Pneumonia [None]
  - Breast cancer metastatic [None]
